FAERS Safety Report 16519338 (Version 2)
Quarter: 2019Q3

REPORT INFORMATION
  Report Type: Spontaneous
  Country: NL (occurrence: NL)
  Receive Date: 20190702
  Receipt Date: 20190710
  Transmission Date: 20191004
  Serious: Yes (Hospitalization, Other)
  Sender: FDA-Public Use
  Company Number: NL-MYLANLABS-2019M1061606

PATIENT
  Age: 72 Year
  Sex: Male

DRUGS (8)
  1. XTANDI [Interacting]
     Active Substance: ENZALUTAMIDE
     Dosage: 160 MILLIGRAM, QD
     Route: 065
     Dates: start: 20180222, end: 20180404
  2. XTANDI [Interacting]
     Active Substance: ENZALUTAMIDE
     Indication: PROSTATE CANCER METASTATIC
     Dosage: UNK
     Route: 065
  3. FENTANYL. [Interacting]
     Active Substance: FENTANYL
     Dosage: 200 MICROGRAM, QH
     Route: 062
  4. FENTANYL. [Interacting]
     Active Substance: FENTANYL
     Dosage: 75 MICROGRAM, QH
     Route: 062
  5. PARACETAMOL [Concomitant]
     Active Substance: ACETAMINOPHEN
     Indication: PAIN
     Dosage: 1000 MILLIGRAM, QD
     Route: 065
  6. FENTANYL. [Interacting]
     Active Substance: FENTANYL
     Dosage: 100 MICROGRAM, QH
     Route: 062
  7. OXYCODONE [Concomitant]
     Active Substance: OXYCODONE
     Indication: PAIN
     Dosage: 10 MG, AS NEEDED, UPTO 6 TIMES DAILY
     Route: 065
  8. FENTANYL. [Suspect]
     Active Substance: FENTANYL
     Indication: PAIN
     Dosage: 100 MICROGRAM, QH
     Route: 065

REACTIONS (4)
  - Drug interaction [Unknown]
  - Therapeutic response decreased [Unknown]
  - Malignant neoplasm progression [Unknown]
  - Pain [Recovering/Resolving]

NARRATIVE: CASE EVENT DATE: 20180321
